FAERS Safety Report 8226023-2 (Version None)
Quarter: 2012Q1

REPORT INFORMATION
  Report Type: 
  Country: None (occurrence: None)
  Receive Date: 20120321
  Receipt Date: 20120315
  Transmission Date: 20120608
  Serious: No
  Sender: FDA-Public Use
  Company Number: US-PFIZER INC-2012069029

PATIENT
  Sex: Female

DRUGS (3)
  1. LYRICA [Suspect]
     Dosage: 75MG IN THE MORNING AND 100MG AT NIGHT
     Route: 048
     Dates: start: 20120314
  2. LYRICA [Suspect]
     Indication: FIBROMYALGIA
     Dosage: 75 MG, 2X/DAY
     Route: 048
     Dates: start: 20120214, end: 20120301
  3. LYRICA [Suspect]
     Indication: PAIN
     Dosage: 75MG IN THE MORNING AND 100MG AT NIGHT
     Route: 048
     Dates: start: 20120301, end: 20120301

REACTIONS (6)
  - DYSPHONIA [None]
  - PAIN [None]
  - CHEILITIS [None]
  - EYE SWELLING [None]
  - HYPERSENSITIVITY [None]
  - LIP SWELLING [None]
